FAERS Safety Report 17122065 (Version 1)
Quarter: 2019Q4

REPORT INFORMATION
  Report Type: Spontaneous
  Country: US (occurrence: US)
  Receive Date: 20191114
  Receipt Date: 20191114
  Transmission Date: 20200122
  Serious: No
  Sender: FDA-Public Use
  Company Number: None

PATIENT
  Age: 28 Year
  Sex: Female

DRUGS (1)
  1. REMICADE [Suspect]
     Active Substance: INFLIXIMAB
     Indication: PSORIATIC ARTHROPATHY
     Dosage: OTHER
     Route: 041
     Dates: start: 20191107

REACTIONS (5)
  - Headache [None]
  - Nausea [None]
  - Dizziness [None]
  - Anxiety [None]
  - Immunosuppression [None]

NARRATIVE: CASE EVENT DATE: 20191107
